FAERS Safety Report 24603284 (Version 1)
Quarter: 2024Q4

REPORT INFORMATION
  Report Type: Spontaneous
  Country: US (occurrence: US)
  Receive Date: 20241111
  Receipt Date: 20241111
  Transmission Date: 20250115
  Serious: Yes (Hospitalization, Other)
  Sender: BAYER HEALTHCARE PHARMACEUTICALS INC.
  Company Number: US-BAYER-2024A155993

PATIENT
  Sex: Female

DRUGS (5)
  1. ADEMPAS [Suspect]
     Active Substance: RIOCIGUAT
     Indication: Pulmonary arterial hypertension
  2. WINREVAIR [Concomitant]
     Active Substance: SOTATERCEPT-CSRK
  3. VELETRI [Concomitant]
     Active Substance: EPOPROSTENOL
  4. AMBRISENTAN [Concomitant]
     Active Substance: AMBRISENTAN
  5. SERALUTINIB [Concomitant]
     Active Substance: SERALUTINIB

REACTIONS (8)
  - Haemorrhage [None]
  - Platelet count decreased [None]
  - Systemic lupus erythematosus [None]
  - Shock haemorrhagic [None]
  - Gastrointestinal haemorrhage [None]
  - Haemoglobin decreased [None]
  - Blood pressure systolic decreased [None]
  - Epistaxis [None]

NARRATIVE: CASE EVENT DATE: 20241001
